FAERS Safety Report 7455889-9 (Version None)
Quarter: 2011Q2

REPORT INFORMATION
  Report Type: 
  Country: None (occurrence: None)
  Receive Date: 20110503
  Receipt Date: 20110422
  Transmission Date: 20111010
  Serious: Yes (Death, Hospitalization)
  Sender: FDA-Public Use
  Company Number: B0551324A

PATIENT
  Age: 73 Year
  Sex: Male
  Weight: 54.1 kg

DRUGS (5)
  1. OMEGACIN [Concomitant]
     Indication: LIVER DISORDER
     Dosage: .6G PER DAY
     Route: 042
     Dates: start: 20080212, end: 20080416
  2. GLYCYRON [Concomitant]
     Indication: LIVER DISORDER
     Dosage: 3IUAX PER DAY
     Route: 048
     Dates: start: 20071205, end: 20080630
  3. ESKAZOLE [Suspect]
     Indication: ECHINOCOCCIASIS
     Dosage: 200MG THREE TIMES PER DAY
     Route: 048
     Dates: start: 20080123, end: 20080211
  4. URSO 250 [Concomitant]
     Indication: LIVER DISORDER
     Dosage: 300MG PER DAY
     Route: 048
     Dates: start: 20071211, end: 20080630
  5. MEROPENEM [Concomitant]
     Indication: LIVER DISORDER
     Dosage: 1G PER DAY
     Route: 042
     Dates: start: 20080417, end: 20080701

REACTIONS (11)
  - PANCYTOPENIA [None]
  - MULTI-ORGAN FAILURE [None]
  - WHITE BLOOD CELL COUNT DECREASED [None]
  - PYREXIA [None]
  - SEPSIS [None]
  - PLATELET COUNT DECREASED [None]
  - COMA [None]
  - LIVER ABSCESS [None]
  - DISSEMINATED INTRAVASCULAR COAGULATION [None]
  - INFLAMMATION [None]
  - HEPATIC FUNCTION ABNORMAL [None]
